FAERS Safety Report 4689076-4 (Version None)
Quarter: 2005Q2

REPORT INFORMATION
  Report Type: 
  Country: None (occurrence: None)
  Receive Date: 20050613
  Receipt Date: 20050303
  Transmission Date: 20051028
  Serious: Yes (Other)
  Sender: FDA-Public Use
  Company Number: US-BOEHRINGER INGELHEIM PHARMACEUTICALS, INC.-2005-DE-00860GD

PATIENT

DRUGS (2)
  1. CLONIDINE [Suspect]
  2. 2-CHLOROPROCAINE [Suspect]

REACTIONS (1)
  - BLOOD PRESSURE SYSTOLIC DECREASED [None]
